FAERS Safety Report 22070885 (Version 5)
Quarter: 2024Q3

REPORT INFORMATION
  Report Type: Spontaneous
  Country: US (occurrence: US)
  Receive Date: 20230307
  Receipt Date: 20240904
  Transmission Date: 20241016
  Serious: No
  Sender: PFIZER
  Company Number: US-PFIZER INC-PV202300039619

PATIENT
  Age: 67 Year
  Sex: Female
  Weight: 90.26 kg

DRUGS (3)
  1. IBRANCE [Suspect]
     Active Substance: PALBOCICLIB
     Indication: Breast cancer female
     Dosage: 125 MG
  2. IBRANCE [Suspect]
     Active Substance: PALBOCICLIB
     Dosage: 75 MG, CYCLIC, TAKE 1 TABLET (75 MG) ONCE DAILY. TAKE FOR 21 DAYS ON, FOLLOWED BY 7 DAYS OFF
     Route: 048
  3. IBRANCE [Suspect]
     Active Substance: PALBOCICLIB
     Dosage: 75 MG, 1X/DAY

REACTIONS (2)
  - Abdominal discomfort [Unknown]
  - Product prescribing error [Unknown]
